FAERS Safety Report 14525319 (Version 2)
Quarter: 2018Q1

REPORT INFORMATION
  Report Type: Spontaneous
  Country: IL (occurrence: IL)
  Receive Date: 20180213
  Receipt Date: 20180213
  Transmission Date: 20180509
  Serious: Yes (Death)
  Sender: FDA-Public Use
  Company Number: PHHY2018IL023828

PATIENT

DRUGS (8)
  1. METHOTREXATE. [Suspect]
     Active Substance: METHOTREXATE
     Indication: STEM CELL TRANSPLANT
     Route: 065
  2. FLUDARABINE [Concomitant]
     Active Substance: FLUDARABINE PHOSPHATE
     Indication: BONE MARROW CONDITIONING REGIMEN
     Route: 065
  3. CICLOSPORIN [Suspect]
     Active Substance: CYCLOSPORINE
     Indication: STEM CELL TRANSPLANT
     Route: 065
  4. CICLOSPORIN [Suspect]
     Active Substance: CYCLOSPORINE
     Indication: PROPHYLAXIS AGAINST GRAFT VERSUS HOST DISEASE
  5. METHOTREXATE. [Suspect]
     Active Substance: METHOTREXATE
     Indication: PROPHYLAXIS AGAINST GRAFT VERSUS HOST DISEASE
  6. CARFILZOMIB [Suspect]
     Active Substance: CARFILZOMIB
     Indication: PROPHYLAXIS AGAINST GRAFT VERSUS HOST DISEASE
  7. CARFILZOMIB [Suspect]
     Active Substance: CARFILZOMIB
     Indication: STEM CELL TRANSPLANT
     Dosage: 20 MG/M2, (2 DOSES) ON DAYS 1 AND 2
     Route: 065
  8. ANTITHYMOCYTE IMMUNOGLOBULIN (RABBIT) [Concomitant]
     Active Substance: LAPINE T-LYMPHOCYTE IMMUNE GLOBULIN
     Indication: BONE MARROW CONDITIONING REGIMEN
     Dosage: 15 MG/KG, UNK
     Route: 065

REACTIONS (2)
  - Multiple organ dysfunction syndrome [Fatal]
  - Product use in unapproved indication [Unknown]
